FAERS Safety Report 5790657-5 (Version None)
Quarter: 2008Q2

REPORT INFORMATION
  Report Type: 
  Country: None (occurrence: None)
  Receive Date: 20080626
  Receipt Date: 20080502
  Transmission Date: 20081010
  Serious: No
  Sender: FDA-Public Use
  Company Number: A0726047A

PATIENT
  Age: 61 Year
  Sex: Female

DRUGS (2)
  1. ALLI [Suspect]
  2. VITAMIN D [Concomitant]

REACTIONS (4)
  - ABDOMINAL DISTENSION [None]
  - FLATULENCE [None]
  - OEDEMA PERIPHERAL [None]
  - RECTAL DISCHARGE [None]
